FAERS Safety Report 9564082 (Version 1)
Quarter: 2013Q3

REPORT INFORMATION
  Report Type: Spontaneous
  Country: CA (occurrence: CA)
  Receive Date: 20130929
  Receipt Date: 20130929
  Transmission Date: 20140515
  Serious: Yes (Other)
  Sender: FDA-Public Use
  Company Number: CA-AMGEN-CANSP2013066854

PATIENT
  Age: 49 Year
  Sex: Female

DRUGS (1)
  1. NPLATE [Suspect]
     Indication: IMMUNE THROMBOCYTOPENIC PURPURA
     Dosage: 75 MUG, Q2WK
     Route: 058
     Dates: start: 20120312

REACTIONS (2)
  - Platelet count abnormal [Unknown]
  - Drug effect incomplete [Unknown]
